FAERS Safety Report 8772036 (Version 2)
Quarter: 2012Q4

REPORT INFORMATION
  Report Type: 
  Country: MX (occurrence: MX)
  Receive Date: 20120905
  Receipt Date: 20120925
  Transmission Date: 20130627
  Serious: Yes (Other)
  Sender: FDA-Public Use
  Company Number: PHHY2012MX076613

PATIENT
  Sex: Female

DRUGS (2)
  1. EXFORGE [Suspect]
     Indication: HYPERTENSION
     Dosage: 1 DF,daily (160 mg vals and 5mg amlo)
     Dates: end: 201204
  2. EXFORGE [Suspect]
     Dosage: 1 DF,daily(160 mg vals and 5 mg amlo)
     Dates: start: 201207

REACTIONS (1)
  - Neoplasm malignant [Unknown]
